FAERS Safety Report 15859405 (Version 5)
Quarter: 2019Q1

REPORT INFORMATION
  Report Type: Spontaneous
  Country: CN (occurrence: CN)
  Receive Date: 20190123
  Receipt Date: 20190326
  Transmission Date: 20190417
  Serious: Yes (Death, Life-Threatening)
  Sender: FDA-Public Use
  Company Number: CN-CELGENEUS-CHN-20190106529

PATIENT
  Age: 67 Year
  Sex: Female
  Weight: 66 kg

DRUGS (21)
  1. ALLOPURINOL. [Concomitant]
     Active Substance: ALLOPURINOL
     Indication: PROPHYLAXIS
     Route: 048
     Dates: start: 20181210, end: 20181228
  2. G-CSF [Concomitant]
     Active Substance: GRANULOCYTE COLONY-STIMULATING FACTOR NOS
     Indication: LEUKOPENIA
     Route: 058
     Dates: start: 20181214, end: 20181221
  3. G-CSF [Concomitant]
     Active Substance: GRANULOCYTE COLONY-STIMULATING FACTOR NOS
     Indication: NEUTROPENIA
     Route: 058
     Dates: start: 20181230, end: 20190106
  4. VENETOCLAX. [Concomitant]
     Active Substance: VENETOCLAX
     Dosage: 400 MILLIGRAM
     Route: 048
     Dates: start: 20181213, end: 20190107
  5. OMEPRAZOLE. [Concomitant]
     Active Substance: OMEPRAZOLE
     Indication: PROPHYLAXIS
     Dosage: 60 MILLIGRAM
     Route: 041
     Dates: start: 20181210, end: 20181228
  6. SODIUM BICARBONATE. [Concomitant]
     Active Substance: SODIUM BICARBONATE
     Indication: PROPHYLAXIS
     Route: 041
     Dates: start: 20181210, end: 20181228
  7. ORAL FLUIDS [Concomitant]
     Indication: PROPHYLAXIS
     Route: 048
     Dates: start: 20181208, end: 20181213
  8. NORMAL SALINE [Concomitant]
     Active Substance: SODIUM CHLORIDE
     Indication: PROPHYLAXIS
     Route: 041
     Dates: start: 20181210, end: 20181213
  9. FRUITY POTASSIUM [Concomitant]
     Indication: HYPOKALAEMIA
     Dosage: 6 DOSAGE FORMS
     Route: 048
     Dates: start: 20190108, end: 20190116
  10. OMEPRAZOLE. [Concomitant]
     Active Substance: OMEPRAZOLE
     Route: 041
     Dates: start: 20190113, end: 20190116
  11. PALONOSETRON. [Concomitant]
     Active Substance: PALONOSETRON HYDROCHLORIDE
     Indication: PROPHYLAXIS
     Dosage: .25 MILLIGRAM
     Route: 041
     Dates: start: 20181212, end: 20181229
  12. POTASSIUM CHLORIDE. [Concomitant]
     Active Substance: POTASSIUM CHLORIDE
     Indication: HYPOKALAEMIA
     Dosage: 2 GRAM
     Route: 041
     Dates: start: 20190114, end: 20190114
  13. AZACITIDINE. [Suspect]
     Active Substance: AZACITIDINE
     Indication: ACUTE MYELOID LEUKAEMIA
     Route: 058
     Dates: start: 20181211, end: 20181217
  14. VENETOCLAX. [Concomitant]
     Active Substance: VENETOCLAX
     Indication: ACUTE MYELOID LEUKAEMIA
     Dosage: 100 MILLIGRAM
     Route: 048
     Dates: start: 20181211, end: 20181211
  15. HEPATOCYTE GROWTH-PROMOTING FACTORS [Concomitant]
     Indication: BLOOD LACTATE DEHYDROGENASE INCREASED
     Dosage: .12 GRAM
     Route: 041
     Dates: start: 20181212, end: 20190101
  16. HEPATOCYTE GROWTH-PROMOTING FACTORS [Concomitant]
     Indication: ASPARTATE AMINOTRANSFERASE INCREASED
  17. G-CSF [Concomitant]
     Active Substance: GRANULOCYTE COLONY-STIMULATING FACTOR NOS
     Dosage: 600 MICROGRAM
     Route: 058
     Dates: start: 20190106, end: 20190116
  18. GM-CSF [Concomitant]
     Active Substance: GRANULOCYTE-MACROPHAGE COLONY-STIMULATING FACTOR
     Indication: LEUKOPENIA
     Route: 058
     Dates: start: 20181214, end: 20190111
  19. VENETOCLAX. [Concomitant]
     Active Substance: VENETOCLAX
     Dosage: 200 MILLIGRAM
     Route: 048
     Dates: start: 20181212, end: 20181212
  20. OMEPRAZOLE. [Concomitant]
     Active Substance: OMEPRAZOLE
     Route: 041
     Dates: start: 20181229, end: 20190101
  21. GM-CSF [Concomitant]
     Active Substance: GRANULOCYTE-MACROPHAGE COLONY-STIMULATING FACTOR
     Indication: NEUTROPENIA

REACTIONS (5)
  - Bacteraemia [Not Recovered/Not Resolved]
  - Death [Fatal]
  - Blood bilirubin unconjugated increased [Unknown]
  - Pneumonia [Not Recovered/Not Resolved]
  - Haemolysis [Not Recovered/Not Resolved]

NARRATIVE: CASE EVENT DATE: 20181211
